FAERS Safety Report 25092339 (Version 1)
Quarter: 2025Q1

REPORT INFORMATION
  Report Type: Spontaneous
  Country: UG (occurrence: UG)
  Receive Date: 20250319
  Receipt Date: 20250319
  Transmission Date: 20250408
  Serious: Yes (Death, Hospitalization, Other)
  Sender: RANBAXY
  Company Number: UG-SUN PHARMACEUTICAL INDUSTRIES LTD-2025R1-498847

PATIENT
  Sex: Female
  Weight: 2.5 kg

DRUGS (1)
  1. FOLIC ACID [Suspect]
     Active Substance: FOLIC ACID
     Indication: Amenorrhoea
     Route: 064

REACTIONS (3)
  - Osteogenesis imperfecta [Fatal]
  - Premature baby [Unknown]
  - Foetal exposure during pregnancy [Unknown]
